FAERS Safety Report 6189641-1 (Version None)
Quarter: 2009Q2

REPORT INFORMATION
  Report Type: 
  Country: None (occurrence: None)
  Receive Date: 20090514
  Receipt Date: 20090407
  Transmission Date: 20091009
  Serious: No
  Sender: FDA-Public Use
  Company Number: US-BAYER-200917637NA

PATIENT
  Age: 66 Year
  Sex: Female

DRUGS (1)
  1. AVELOX [Suspect]
     Indication: SINUS DISORDER
     Dates: start: 20081201, end: 20090126

REACTIONS (3)
  - ARTHRALGIA [None]
  - PARAESTHESIA [None]
  - TENDON DISORDER [None]
